FAERS Safety Report 5208621-3 (Version None)
Quarter: 2007Q1

REPORT INFORMATION
  Report Type: 
  Country: None (occurrence: None)
  Receive Date: 20070116
  Receipt Date: 20070104
  Transmission Date: 20070707
  Serious: Yes (Hospitalization)
  Sender: FDA-Public Use
  Company Number: PHNU2006DE04058

PATIENT
  Sex: Male

DRUGS (2)
  1. EXJADE [Suspect]
     Dosage: 500 MG/DAY
     Route: 048
     Dates: start: 20061101, end: 20061201
  2. NILOTINIB [Concomitant]
     Indication: CHRONIC MYELOID LEUKAEMIA
     Dosage: 400 MG/DAY
     Route: 065
     Dates: start: 20050901

REACTIONS (6)
  - GENERAL PHYSICAL HEALTH DETERIORATION [None]
  - HISTOLOGY ABNORMAL [None]
  - LYMPHOCYTIC INFILTRATION [None]
  - PAIN OF SKIN [None]
  - PRURITUS [None]
  - SKIN DISORDER [None]
